FAERS Safety Report 10027368 (Version 5)
Quarter: 2015Q2

REPORT INFORMATION
  Report Type: Spontaneous
  Country: US (occurrence: US)
  Receive Date: 20140321
  Receipt Date: 20150617
  Transmission Date: 20150821
  Serious: Yes (Hospitalization, Other)
  Sender: FDA-Public Use
  Company Number: US-SANOFI-AVENTIS-2012SA003115

PATIENT
  Age: 74 Year
  Sex: Male
  Weight: 69.85 kg

DRUGS (8)
  1. GLIPIZIDE. [Concomitant]
     Active Substance: GLIPIZIDE
     Dosage: BEFORE BREAKFAST
  2. HYDROCHLOROTHIAZIDE. [Concomitant]
     Active Substance: HYDROCHLOROTHIAZIDE
  3. ASPIRIN. [Concomitant]
     Active Substance: ASPIRIN
     Dosage: HALF OF 325 MG EVERY DAY
  4. PROVENTIL [Concomitant]
     Active Substance: ALBUTEROL
  5. TRIAMTERENE. [Concomitant]
     Active Substance: TRIAMTERENE
     Dosage: DOSE: 37 1/2 MG QAM
     Route: 048
  6. ETODOLAC. [Concomitant]
     Active Substance: ETODOLAC
     Route: 048
  7. PLAVIX [Suspect]
     Active Substance: CLOPIDOGREL BISULFATE
     Indication: CEREBROVASCULAR ACCIDENT
     Route: 048
     Dates: start: 20040223, end: 20100208
  8. SIMVASTATIN. [Concomitant]
     Active Substance: SIMVASTATIN
     Dosage: 80 MG A HALF TABLET AT BEDTIME

REACTIONS (9)
  - Multiple injuries [Unknown]
  - Gastrointestinal haemorrhage [Recovered/Resolved]
  - Gastrointestinal ulcer [Unknown]
  - Haematochezia [Recovered/Resolved]
  - Anaemia [Recovered/Resolved]
  - Abdominal pain upper [Recovering/Resolving]
  - Asthenia [Recovered/Resolved]
  - Rectal haemorrhage [Unknown]
  - Eating disorder [Unknown]

NARRATIVE: CASE EVENT DATE: 20090324
